FAERS Safety Report 8765190 (Version 1)
Quarter: 2012Q4

REPORT INFORMATION
  Report Type: 
  Country: US (occurrence: US)
  Receive Date: 20120903
  Receipt Date: 20120903
  Transmission Date: 20130627
  Serious: No
  Sender: FDA-Public Use
  Company Number: US-PFIZER INC-2012215302

PATIENT
  Age: 56 Year
  Sex: Female
  Weight: 60.77 kg

DRUGS (3)
  1. CHANTIX [Suspect]
     Indication: SMOKING CESSATION THERAPY
     Dosage: UNK
     Dates: start: 201208
  2. AMBIEN [Suspect]
     Indication: SLEEP DISORDER
     Dosage: 10 mg, daily
  3. AMBIEN [Suspect]
     Dosage: UNK

REACTIONS (1)
  - Sleep disorder [Unknown]
